FAERS Safety Report 10279510 (Version 2)
Quarter: 2014Q3

REPORT INFORMATION
  Report Type: Spontaneous
  Country: US (occurrence: US)
  Receive Date: 20140707
  Receipt Date: 20140821
  Transmission Date: 20150326
  Serious: No
  Sender: FDA-Public Use
  Company Number: US-009507513-1407USA002640

PATIENT
  Age: 25 Year
  Sex: Female
  Weight: 61.22 kg

DRUGS (1)
  1. NUVARING [Suspect]
     Active Substance: ETHINYL ESTRADIOL\ETONOGESTREL
     Indication: CONTRACEPTION
     Dosage: DOSE/FREQUENCY: 1 RING 3 WEEKS IN AND 1 WEEK OUT
     Route: 067
     Dates: end: 2014

REACTIONS (2)
  - Metrorrhagia [Unknown]
  - Anxiety [Unknown]

NARRATIVE: CASE EVENT DATE: 201306
